FAERS Safety Report 9226160 (Version 1)
Quarter: 2013Q2

REPORT INFORMATION
  Report Type: Spontaneous
  Country: US (occurrence: US)
  Receive Date: 20130411
  Receipt Date: 20130411
  Transmission Date: 20140414
  Serious: No
  Sender: FDA-Public Use
  Company Number: US-ASTRAZENECA-2013SE20258

PATIENT
  Age: 692 Month
  Sex: Female

DRUGS (1)
  1. ZOMIG NASAL SPRAY [Suspect]
     Indication: MIGRAINE
     Dosage: 5 MG (1 SPRAY) IN NOSTRIL AT ONSET OF MIGRAINE MAY REPEAT AFTER 2 HOURS IF NEEDED MAX 2 SPRAYS/DAY
     Route: 045

REACTIONS (2)
  - Bronchitis [Not Recovered/Not Resolved]
  - Intentional drug misuse [Unknown]
